FAERS Safety Report 8610771-6 (Version None)
Quarter: 2012Q3

REPORT INFORMATION
  Report Type: 
  Country: None (occurrence: None)
  Receive Date: 20120808
  Receipt Date: 20120727
  Transmission Date: 20120928
  Serious: Yes (Other)
  Sender: FDA-Public Use
  Company Number: FK201202144

PATIENT
  Age: 64 Year
  Sex: Male
  Weight: 90 kg

DRUGS (3)
  1. AMOXICILLIN CLAVULANIC ACID (SPEKTRAMOX /02043401/) [Concomitant]
  2. CEFUROXIME [Suspect]
     Indication: PRODUCT USED FOR UNKNOWN INDICATION
     Dosage: 1.5 GM, 1 IN 1 D, INTRAVENOUS (NOT OTHERWISE SPECIFIED)
     Route: 042
  3. METRONIDAZOLE [Suspect]
     Indication: PRODUCT USED FOR UNKNOWN INDICATION
     Dosage: 500 MG, 3 IN 1 D, INTRAVENOUS (NOT OTHERWISE SPECIFIED), 500 MG, 1 IN 1 D
     Route: 042
     Dates: start: 20120629, end: 20120630

REACTIONS (1)
  - RENAL FAILURE ACUTE [None]
